FAERS Safety Report 5795587-0 (Version None)
Quarter: 2008Q2

REPORT INFORMATION
  Report Type: 
  Country: None (occurrence: None)
  Receive Date: 20080630
  Receipt Date: 20080620
  Transmission Date: 20081010
  Serious: Yes (Hospitalization)
  Sender: FDA-Public Use
  Company Number: CH-PFIZER INC-2008051728

PATIENT
  Sex: Male

DRUGS (10)
  1. ALDACTONE [Suspect]
     Route: 048
  2. NITROGLYCERIN [Suspect]
  3. TOREM [Suspect]
     Route: 048
  4. ATACAND [Suspect]
     Route: 048
  5. CARVEDILOL [Suspect]
     Route: 048
  6. CORDARONE [Concomitant]
     Route: 048
  7. ASPIRIN [Concomitant]
     Route: 048
  8. SINTROM [Concomitant]
     Route: 048
  9. ZOCOR [Concomitant]
     Route: 048
  10. INSULIN [Concomitant]

REACTIONS (2)
  - HYPOTENSION [None]
  - SYNCOPE [None]
